FAERS Safety Report 6030411-2 (Version None)
Quarter: 2009Q1

REPORT INFORMATION
  Report Type: 
  Country: None (occurrence: None)
  Receive Date: 20090106
  Receipt Date: 20090106
  Transmission Date: 20090719
  Serious: Yes (Hospitalization)
  Sender: FDA-Public Use
  Company Number: None

PATIENT
  Sex: Male
  Weight: 16.4 kg

DRUGS (7)
  1. CYTARABINE [Suspect]
     Dosage: 5440 MG
  2. IDARUBICIN HCL [Suspect]
     Dosage: 24 MG
  3. LESAURTINIB [Suspect]
     Dosage: 1932 MG
  4. GENTAMICIN [Concomitant]
  5. LINEZOLID [Concomitant]
  6. AMPHOTERICIN B [Concomitant]
  7. ZOSYN [Concomitant]

REACTIONS (16)
  - ABDOMINAL DISTENSION [None]
  - ALANINE AMINOTRANSFERASE INCREASED [None]
  - ANOREXIA [None]
  - APPENDICITIS PERFORATED [None]
  - ASPARTATE AMINOTRANSFERASE INCREASED [None]
  - BLOOD ALBUMIN DECREASED [None]
  - BODY TEMPERATURE INCREASED [None]
  - FEBRILE NEUTROPENIA [None]
  - HAEMATEMESIS [None]
  - HYPERKALAEMIA [None]
  - HYPOKALAEMIA [None]
  - LEFT VENTRICULAR DYSFUNCTION [None]
  - PNEUMONIA [None]
  - TACHYPNOEA [None]
  - WEIGHT INCREASED [None]
  - WHITE BLOOD CELL COUNT DECREASED [None]
